FAERS Safety Report 10191132 (Version 1)
Quarter: 2014Q2

REPORT INFORMATION
  Report Type: Spontaneous
  Country: RO (occurrence: RO)
  Receive Date: 20140523
  Receipt Date: 20140523
  Transmission Date: 20141212
  Serious: Yes (Hospitalization)
  Sender: FDA-Public Use
  Company Number: RO-ASTELLAS-2014EU005638

PATIENT
  Age: 61 Year
  Sex: Male

DRUGS (1)
  1. BETMIGA [Suspect]
     Indication: PRODUCT USED FOR UNKNOWN INDICATION
     Route: 048
     Dates: start: 20140512, end: 20140512

REACTIONS (1)
  - Malaise [Unknown]
